FAERS Safety Report 6781034-9 (Version None)
Quarter: 2010Q2

REPORT INFORMATION
  Report Type: 
  Country: None (occurrence: None)
  Receive Date: 20100621
  Receipt Date: 20100610
  Transmission Date: 20101027
  Serious: No
  Sender: FDA-Public Use
  Company Number: US-JNJFOC-20100603761

PATIENT
  Sex: Male
  Weight: 89.81 kg

DRUGS (2)
  1. FENTANYL-100 [Suspect]
     Indication: BACK PAIN
     Dosage: 100 MCG + 50 MCG = 150 MCG PATCHES
     Route: 062
  2. FENTANYL [Suspect]
     Indication: BACK PAIN
     Route: 062

REACTIONS (4)
  - DRUG EFFECT INCREASED [None]
  - DRUG INEFFECTIVE [None]
  - HYPERTENSION [None]
  - WRONG TECHNIQUE IN DRUG USAGE PROCESS [None]
